FAERS Safety Report 4306894-2 (Version None)
Quarter: 2004Q1

REPORT INFORMATION
  Report Type: 
  Country: None (occurrence: None)
  Receive Date: 20040227
  Receipt Date: 20040226
  Transmission Date: 20041129
  Serious: Yes (Hospitalization)
  Sender: FDA-Public Use
  Company Number: FR-GLAXOSMITHKLINE-B0324749A

PATIENT
  Age: 44 Year
  Sex: Male

DRUGS (1)
  1. ZINNAT [Suspect]
     Route: 048
     Dates: start: 20040101, end: 20040101

REACTIONS (1)
  - ANAPHYLACTIC SHOCK [None]
